FAERS Safety Report 4350112-6 (Version None)
Quarter: 2004Q2

REPORT INFORMATION
  Report Type: 
  Country: None (occurrence: None)
  Receive Date: 20040429
  Receipt Date: 20030515
  Transmission Date: 20050107
  Serious: Yes (Death, Hospitalization)
  Sender: FDA-Public Use
  Company Number: JP-ROCHE-338013

PATIENT
  Age: 71 Year
  Sex: Female
  Weight: 77 kg

DRUGS (10)
  1. ROCEPHIN [Suspect]
     Route: 041
     Dates: start: 20030428, end: 20030501
  2. CRAVIT [Suspect]
     Route: 048
     Dates: start: 20030428, end: 20030504
  3. PL [Concomitant]
     Route: 048
     Dates: start: 20030428, end: 20030504
  4. COUGHCODE [Concomitant]
     Route: 048
     Dates: start: 20030428, end: 20030504
  5. LIPITOR [Concomitant]
  6. UNKNOWN DRUG [Concomitant]
     Dosage: DRUG NAME REPORTED AS MEZOLMIN.
  7. NORVASC [Concomitant]
  8. GASTER [Concomitant]
  9. SIGMART [Concomitant]
  10. PURSENNID [Concomitant]

REACTIONS (7)
  - ANTI-PLATELET ANTIBODY POSITIVE [None]
  - BLOOD URINE [None]
  - INTERSTITIAL LUNG DISEASE [None]
  - LYMPHOCYTE STIMULATION TEST POSITIVE [None]
  - MYCOPLASMA INFECTION [None]
  - PLATELET COUNT ABNORMAL [None]
  - PNEUMOCYSTIS CARINII PNEUMONIA [None]
